FAERS Safety Report 21531687 (Version 1)
Quarter: 2022Q4

REPORT INFORMATION
  Report Type: Spontaneous
  Country: US (occurrence: None)
  Receive Date: 20221030
  Receipt Date: 20221030
  Transmission Date: 20230113
  Serious: No
  Sender: FDA-Public Use
  Company Number: None

PATIENT
  Age: 51 Year
  Sex: Female
  Weight: 66.4 kg

DRUGS (3)
  1. FLUOROURACIL [Suspect]
     Active Substance: FLUOROURACIL
     Dates: end: 20221004
  2. LEUCOVORIN CALCIUM [Suspect]
     Active Substance: LEUCOVORIN CALCIUM
     Dates: end: 20221004
  3. ELOXATIN [Suspect]
     Active Substance: OXALIPLATIN
     Dates: end: 20221004

REACTIONS (4)
  - Paraesthesia [None]
  - Peripheral sensory neuropathy [None]
  - COVID-19 [None]
  - Dysaesthesia [None]

NARRATIVE: CASE EVENT DATE: 20221011
